FAERS Safety Report 6304933-0 (Version None)
Quarter: 2009Q3

REPORT INFORMATION
  Report Type: 
  Country: None (occurrence: None)
  Receive Date: 20090807
  Receipt Date: 20090727
  Transmission Date: 20100115
  Serious: Yes (Other)
  Sender: FDA-Public Use
  Company Number: 20090326 /

PATIENT
  Sex: Female

DRUGS (3)
  1. NEOSTIGMINE METHYLSULFATE INJECTION USP (0033-25) 1.0 MG/ML [Suspect]
     Indication: ANAESTHESIA REVERSAL
     Dosage: INTRAVENOUS
     Route: 042
     Dates: start: 20090720, end: 20090720
  2. NEOSTIGMINE METHYLSULFATE INJECTION USP (0033-25) 1.0 MG/ML [Suspect]
     Indication: ANAESTHESIA REVERSAL
     Dosage: INTRAVENOUS
     Route: 042
     Dates: start: 20090720, end: 20090720
  3. ZEMURON (ROCURONIUM) [Concomitant]

REACTIONS (1)
  - THERAPEUTIC PRODUCT INEFFECTIVE [None]
